FAERS Safety Report 5749871-7 (Version None)
Quarter: 2008Q2

REPORT INFORMATION
  Report Type: 
  Country: None (occurrence: None)
  Receive Date: 20080527
  Receipt Date: 20080515
  Transmission Date: 20081010
  Serious: Yes (Hospitalization)
  Sender: FDA-Public Use
  Company Number: FR-ROCHE-564699

PATIENT
  Sex: Male
  Weight: 70 kg

DRUGS (1)
  1. XELODA [Suspect]
     Dosage: UNITS REPORTED: MG. TEMPORARILY INTERRUPTED.
     Route: 048
     Dates: start: 20080411

REACTIONS (1)
  - FEBRILE BONE MARROW APLASIA [None]
